FAERS Safety Report 21004923 (Version 8)
Quarter: 2023Q1

REPORT INFORMATION
  Report Type: Spontaneous
  Country: JP (occurrence: JP)
  Receive Date: 20220624
  Receipt Date: 20230209
  Transmission Date: 20230417
  Serious: Yes (Hospitalization, Other)
  Sender: FDA-Public Use
  Company Number: JP-MSD-M2022-24493

PATIENT
  Age: 6 Decade
  Sex: Female

DRUGS (6)
  1. KEYTRUDA [Interacting]
     Active Substance: PEMBROLIZUMAB
     Indication: Uterine cancer
     Dosage: 200 MILLIGRAM, Q3W
     Route: 041
     Dates: start: 20220601, end: 20220720
  2. KEYTRUDA [Interacting]
     Active Substance: PEMBROLIZUMAB
     Dosage: 200 MILLIGRAM, Q3W
     Route: 041
     Dates: start: 202208, end: 2022
  3. LENVATINIB MESYLATE [Interacting]
     Active Substance: LENVATINIB MESYLATE
     Indication: Uterine cancer
     Dosage: 20 MILLIGRAM, QD
     Route: 048
     Dates: start: 20220601, end: 202206
  4. LENVATINIB MESYLATE [Interacting]
     Active Substance: LENVATINIB MESYLATE
     Dosage: 14 MILLIGRAM, QD
     Route: 048
     Dates: start: 20220629, end: 20220803
  5. LENVATINIB MESYLATE [Interacting]
     Active Substance: LENVATINIB MESYLATE
     Dosage: 14 MILLIGRAM, QD
     Route: 048
     Dates: start: 202208, end: 2022
  6. LENVATINIB MESYLATE [Interacting]
     Active Substance: LENVATINIB MESYLATE
     Dosage: UNK
     Route: 048
     Dates: start: 2022, end: 202212

REACTIONS (9)
  - Cholecystitis acute [Not Recovered/Not Resolved]
  - Malignant neoplasm progression [Unknown]
  - Infusion related reaction [Recovering/Resolving]
  - Drug interaction [Unknown]
  - Platelet count decreased [Unknown]
  - Amylase increased [Recovered/Resolved]
  - Hypertension [Unknown]
  - Vomiting [Recovered/Resolved]
  - Nausea [Recovered/Resolved]

NARRATIVE: CASE EVENT DATE: 20220601
